FAERS Safety Report 4986964-6 (Version None)
Quarter: 2006Q2

REPORT INFORMATION
  Report Type: 
  Country: None (occurrence: None)
  Receive Date: 20060501
  Receipt Date: 20060406
  Transmission Date: 20061013
  Serious: Yes (Death)
  Sender: FDA-Public Use
  Company Number: JP-BRISTOL-MYERS SQUIBB COMPANY-13339742

PATIENT
  Age: 77 Year
  Sex: Male

DRUGS (10)
  1. PARAPLATIN [Suspect]
     Indication: LUNG ADENOCARCINOMA
     Route: 041
     Dates: start: 20060403, end: 20060403
  2. GEMZAR [Suspect]
     Indication: LUNG ADENOCARCINOMA
     Route: 041
     Dates: start: 20060403, end: 20060403
  3. MAGMITT [Concomitant]
     Route: 048
     Dates: start: 20060323, end: 20060403
  4. LOXONIN [Concomitant]
     Route: 048
     Dates: start: 20060323, end: 20060403
  5. GASTER D [Concomitant]
     Route: 048
     Dates: start: 20060323, end: 20060403
  6. MORPHINE HCL [Concomitant]
     Route: 058
     Dates: start: 20060403, end: 20060406
  7. SOLU-MEDROL [Concomitant]
     Route: 042
     Dates: start: 20060329, end: 20060331
  8. SOLDEM 3A [Concomitant]
     Route: 042
     Dates: start: 20060330, end: 20060402
  9. BROCIN CODEINE [Concomitant]
     Route: 048
     Dates: start: 20060223, end: 20060403
  10. ROCEPHIN [Concomitant]
     Route: 042
     Dates: start: 20060329, end: 20060331

REACTIONS (4)
  - HYPERKALAEMIA [None]
  - LIVER DISORDER [None]
  - METABOLIC ACIDOSIS [None]
  - RENAL DISORDER [None]
